FAERS Safety Report 6812801-0 (Version None)
Quarter: 2010Q3

REPORT INFORMATION
  Report Type: 
  Country: None (occurrence: None)
  Receive Date: 20100701
  Receipt Date: 20100629
  Transmission Date: 20110219
  Serious: Yes (Hospitalization)
  Sender: FDA-Public Use
  Company Number: B0662853A

PATIENT
  Age: 57 Year
  Sex: Female
  Weight: 63 kg

DRUGS (6)
  1. AMOXICILLIN [Suspect]
     Dosage: 1500MG PER DAY
     Route: 048
     Dates: start: 20100611, end: 20100613
  2. PHENYTOIN [Suspect]
     Indication: EPILEPSY
     Dosage: 300MG PER DAY
     Route: 048
     Dates: start: 20100517
  3. FERROUS FUMARATE [Concomitant]
  4. OMEPRAZOLE [Concomitant]
  5. LORATADINE [Concomitant]
     Dosage: 10MG PER DAY
  6. DEXAMETHASONE [Concomitant]

REACTIONS (2)
  - RASH ERYTHEMATOUS [None]
  - RASH MACULO-PAPULAR [None]
